FAERS Safety Report 8272784-6 (Version None)
Quarter: 2012Q2

REPORT INFORMATION
  Report Type: 
  Country: None (occurrence: None)
  Receive Date: 20120411
  Receipt Date: 20120402
  Transmission Date: 20120825
  Serious: Yes (Hospitalization)
  Sender: FDA-Public Use
  Company Number: CH-BIOGENIDEC-2012BI003413

PATIENT
  Age: 60 Year
  Sex: Female

DRUGS (6)
  1. AVONEX [Suspect]
     Route: 030
     Dates: start: 20120201
  2. CALCIMAGON D3 [Concomitant]
     Indication: MUSCLE SPASTICITY
  3. PANTOPRAZOLE [Concomitant]
     Indication: MUSCLE SPASTICITY
  4. AVONEX [Suspect]
     Route: 030
     Dates: start: 20061117, end: 20120101
  5. TIZANIDINE HCL [Concomitant]
     Indication: MUSCLE SPASTICITY
  6. AVONEX [Suspect]
     Indication: MULTIPLE SCLEROSIS
     Route: 030
     Dates: start: 20030501

REACTIONS (4)
  - CIRCULATORY COLLAPSE [None]
  - PNEUMONIA [None]
  - NORMOCHROMIC NORMOCYTIC ANAEMIA [None]
  - BLOOD PRESSURE ABNORMAL [None]
